FAERS Safety Report 9503979 (Version 1)
Quarter: 2013Q1

REPORT INFORMATION
  Report Type: Spontaneous
  Country: US (occurrence: None)
  Receive Date: 20130107
  Receipt Date: 20130107
  Transmission Date: 20140127
  Serious: No
  Sender: FDA-Public Use
  Company Number: PHEH2012US018764

PATIENT
  Age: 44 Year
  Sex: Female

DRUGS (7)
  1. GILENYA (FINGOLIMOD) CAPSULE, 0.5MG [Suspect]
     Route: 048
     Dates: start: 20120718
  2. LEXAPRO (ESCITALOPRAM OXALATE) [Concomitant]
  3. BACLOFEN (BACLOFEN) [Concomitant]
  4. GABAPENTIN (GABAPENTIN) [Concomitant]
  5. AVIANE (ETHINYLESTRADIOL, LEVONORGESTREL) [Concomitant]
  6. VITAMIN B12 (CYANOCOBALAMIN) [Concomitant]
  7. STEROIDS NOS (NO INGREDIENTS/SUBSTANCES) [Concomitant]

REACTIONS (8)
  - Nausea [None]
  - Multiple sclerosis relapse [None]
  - Fatigue [None]
  - Somnolence [None]
  - Speech disorder [None]
  - Hypoaesthesia [None]
  - Muscular weakness [None]
  - Feeling abnormal [None]
